FAERS Safety Report 6875852-6 (Version None)
Quarter: 2010Q3

REPORT INFORMATION
  Report Type: 
  Country: None (occurrence: None)
  Receive Date: 20100727
  Receipt Date: 20070910
  Transmission Date: 20110219
  Serious: Yes (Hospitalization, Other)
  Sender: FDA-Public Use
  Company Number: US-PFIZER INC-2006118917

PATIENT
  Sex: Female
  Weight: 134.7 kg

DRUGS (8)
  1. CELEBREX [Suspect]
     Indication: RHEUMATOID ARTHRITIS
     Dates: start: 19990101, end: 20050722
  2. CELEBREX [Suspect]
     Indication: PAIN
  3. BEXTRA [Suspect]
     Indication: PAIN
     Dosage: 2-3
     Dates: start: 20011101, end: 20050326
  4. VIOXX [Suspect]
     Indication: RHEUMATOID ARTHRITIS
     Route: 048
     Dates: start: 20030628, end: 20040614
  5. FUROSEMIDE [Concomitant]
     Indication: HYPERTENSION
     Dates: start: 20000613, end: 20060910
  6. FUROSEMIDE [Concomitant]
     Indication: OEDEMA PERIPHERAL
  7. LANOXIN [Concomitant]
     Indication: CARDIAC FAILURE CONGESTIVE
     Dates: start: 20000707, end: 20060910
  8. POTASSIUM CHLORIDE [Concomitant]
     Indication: HYPOKALAEMIA
     Dates: start: 20000613, end: 20060910

REACTIONS (1)
  - MYOCARDIAL INFARCTION [None]
